FAERS Safety Report 5694324-8 (Version None)
Quarter: 2008Q2

REPORT INFORMATION
  Report Type: 
  Country: None (occurrence: None)
  Receive Date: 20080404
  Receipt Date: 20080328
  Transmission Date: 20081010
  Serious: Yes (Death, Life-Threatening, Hospitalization)
  Sender: FDA-Public Use
  Company Number: IT-JNJFOC-20080401067

PATIENT
  Age: 78 Year
  Sex: Male
  Weight: 78 kg

DRUGS (9)
  1. DOXORUBICIN HCL [Suspect]
     Indication: MULTIPLE MYELOMA
     Route: 042
  2. BORTEZOMIB [Suspect]
     Indication: MULTIPLE MYELOMA
     Route: 058
  3. DEXAMETHASONE [Suspect]
     Indication: MULTIPLE MYELOMA
     Route: 065
  4. NITRO-DUR [Concomitant]
     Route: 065
  5. ENAPREN [Concomitant]
     Route: 065
  6. ASPIRIN [Concomitant]
     Route: 048
  7. SERETIDE [Concomitant]
     Route: 055
  8. CARVEDILOL [Concomitant]
     Route: 048
  9. TICLODIPINE [Concomitant]
     Route: 065

REACTIONS (5)
  - ATRIAL FIBRILLATION [None]
  - CARDIAC ARREST [None]
  - DYSPNOEA [None]
  - PYREXIA [None]
  - RESPIRATORY FAILURE [None]
